FAERS Safety Report 23903580 (Version 2)
Quarter: 2024Q2

REPORT INFORMATION
  Report Type: Spontaneous
  Country: US (occurrence: None)
  Receive Date: 20240527
  Receipt Date: 20240614
  Transmission Date: 20240717
  Serious: No
  Sender: FDA-Public Use
  Company Number: 2024A114658

PATIENT

DRUGS (1)
  1. SYMBICORT [Suspect]
     Active Substance: BUDESONIDE\FORMOTEROL FUMARATE DIHYDRATE
     Indication: Bronchitis
     Dosage: 160 UG, 2 PUFFS TWICE DAILY
     Route: 055

REACTIONS (5)
  - Asthma [Unknown]
  - Pneumonia [Unknown]
  - Off label use [Unknown]
  - Incorrect dose administered by device [Unknown]
  - Device physical property issue [Unknown]
